FAERS Safety Report 23746951 (Version 3)
Quarter: 2025Q1

REPORT INFORMATION
  Report Type: Spontaneous
  Country: JP (occurrence: JP)
  Receive Date: 20240416
  Receipt Date: 20250324
  Transmission Date: 20250409
  Serious: Yes (Life-Threatening, Hospitalization, Other)
  Sender: ACCORD
  Company Number: JP-Accord-418953

PATIENT
  Age: 6 Decade
  Sex: Female

DRUGS (12)
  1. AMLODIPINE [Suspect]
     Active Substance: AMLODIPINE BESYLATE
     Route: 048
  2. OLMESARTAN MEDOXOMIL [Suspect]
     Active Substance: OLMESARTAN MEDOXOMIL
     Route: 048
  3. AZELNIDIPINE [Suspect]
     Active Substance: AZELNIDIPINE
     Route: 048
  4. NIFEDIPINE [Suspect]
     Active Substance: NIFEDIPINE
     Route: 048
  5. TELMISARTAN [Suspect]
     Active Substance: TELMISARTAN
     Route: 048
  6. VILDAGLIPTIN [Suspect]
     Active Substance: VILDAGLIPTIN
     Route: 048
  7. NIFEDIPINE [Suspect]
     Active Substance: NIFEDIPINE
  8. AMLODIPINE [Suspect]
     Active Substance: AMLODIPINE BESYLATE
  9. OLMESARTAN MEDOXOMIL [Suspect]
     Active Substance: OLMESARTAN MEDOXOMIL
  10. TELMISARTAN [Suspect]
     Active Substance: TELMISARTAN
  11. VILDAGLIPTIN [Suspect]
     Active Substance: VILDAGLIPTIN
  12. AZELNIDIPINE [Suspect]
     Active Substance: AZELNIDIPINE

REACTIONS (10)
  - Intentional overdose [Unknown]
  - Compartment syndrome [Recovering/Resolving]
  - Angioedema [Recovering/Resolving]
  - Hypotension [Recovering/Resolving]
  - Shock [Recovered/Resolved]
  - Coma [Recovered/Resolved]
  - Necrosis [Recovering/Resolving]
  - Nausea [Recovering/Resolving]
  - Vomiting [Recovering/Resolving]
  - Acute kidney injury [Recovering/Resolving]
